FAERS Safety Report 14404944 (Version 1)
Quarter: 2018Q1

REPORT INFORMATION
  Report Type: Report from Study
  Country: KR (occurrence: KR)
  Receive Date: 20180118
  Receipt Date: 20180118
  Transmission Date: 20180509
  Serious: Yes (Hospitalization)
  Sender: FDA-Public Use
  Company Number: KR-EMD SERONO-E2B_90012344

PATIENT
  Age: 7 Year
  Sex: Male

DRUGS (1)
  1. SAIZEN [Suspect]
     Active Substance: SOMATROPIN
     Indication: PRODUCT USED FOR UNKNOWN INDICATION
     Route: 058
     Dates: start: 20171211

REACTIONS (1)
  - Pyrexia [Unknown]

NARRATIVE: CASE EVENT DATE: 201801
